FAERS Safety Report 5957484-7 (Version None)
Quarter: 2008Q4

REPORT INFORMATION
  Report Type: 
  Country: None (occurrence: None)
  Receive Date: 20081114
  Receipt Date: 20081107
  Transmission Date: 20090506
  Serious: Yes (Hospitalization)
  Sender: FDA-Public Use
  Company Number: SPV1-2008-02456

PATIENT
  Age: 71 Year
  Sex: Female

DRUGS (1)
  1. FOSRENOL [Suspect]
     Dosage: EACH MEAL, ORAL
     Route: 048

REACTIONS (2)
  - ABDOMINAL DISCOMFORT [None]
  - BACTERIAL INFECTION [None]
